FAERS Safety Report 4925207-6 (Version None)
Quarter: 2006Q1

REPORT INFORMATION
  Report Type: 
  Country: None (occurrence: None)
  Receive Date: 20060228
  Receipt Date: 20060127
  Transmission Date: 20060701
  Serious: No
  Sender: FDA-Public Use
  Company Number: 4912054

PATIENT
  Age: 55 Year
  Sex: Male

DRUGS (1)
  1. AVODART [Suspect]
     Route: 048
     Dates: start: 20050801

REACTIONS (2)
  - BREAST PAIN [None]
  - GYNAECOMASTIA [None]
